FAERS Safety Report 21053296 (Version 1)
Quarter: 2022Q3

REPORT INFORMATION
  Report Type: Report from Study
  Country: GB (occurrence: GB)
  Receive Date: 20220707
  Receipt Date: 20220707
  Transmission Date: 20221027
  Serious: Yes (Other)
  Sender: FDA-Public Use
  Company Number: GB-GLAXOSMITHKLINE-GB2021EME228743

PATIENT

DRUGS (1)
  1. NIRAPARIB [Suspect]
     Active Substance: NIRAPARIB
     Indication: Neoplasm malignant
     Dosage: 100 MG
     Dates: end: 202207

REACTIONS (11)
  - Malignant neoplasm progression [Unknown]
  - Dyspnoea exertional [Not Recovered/Not Resolved]
  - Fatigue [Not Recovered/Not Resolved]
  - Dizziness [Unknown]
  - Headache [Unknown]
  - Blood pressure increased [Unknown]
  - Fungal infection [Unknown]
  - Hot flush [Not Recovered/Not Resolved]
  - Tumour marker increased [Unknown]
  - Hyperhidrosis [Unknown]
  - Depressed mood [Unknown]
